FAERS Safety Report 4308938-0 (Version None)
Quarter: 2004Q1

REPORT INFORMATION
  Report Type: 
  Country: None (occurrence: None)
  Receive Date: 20040227
  Receipt Date: 20040219
  Transmission Date: 20041129
  Serious: Yes (Hospitalization)
  Sender: FDA-Public Use
  Company Number: FR-JNJFOC-20040201310

PATIENT
  Age: 63 Year
  Sex: Female
  Weight: 100 kg

DRUGS (7)
  1. DUROGESIC (FENTANYL) PATCH [Suspect]
     Indication: PAIN
     Dosage: 75 UG/HR, 1 IN 3 DAY, TRANSDERMAL; 50 UG/HR, 1 IN 3 DAY, TRANSDERMAL
     Route: 062
     Dates: start: 20040122, end: 20040129
  2. DUROGESIC (FENTANYL) PATCH [Suspect]
     Indication: PAIN
     Dosage: 75 UG/HR, 1 IN 3 DAY, TRANSDERMAL; 50 UG/HR, 1 IN 3 DAY, TRANSDERMAL
     Route: 062
     Dates: start: 20040130
  3. ANFRANIL (CLOPIRAMINE HYDROCHLORIDE) [Concomitant]
  4. PROZAC (FLUOXETINE HYDROCHLORIDE) TABLETS [Concomitant]
  5. LEVOTHYROXINE SODIUM [Concomitant]
  6. FENOFIBRATE [Concomitant]
  7. TENSTATEN (CICLETANINE) [Concomitant]

REACTIONS (3)
  - ANXIETY [None]
  - DELUSION [None]
  - HALLUCINATION, VISUAL [None]
